FAERS Safety Report 5385869-9 (Version None)
Quarter: 2007Q3

REPORT INFORMATION
  Report Type: 
  Country: None (occurrence: None)
  Receive Date: 20070712
  Receipt Date: 20070702
  Transmission Date: 20080115
  Serious: Yes (Hospitalization)
  Sender: FDA-Public Use
  Company Number: FR-ABBOTT-07P-056-0373357-00

PATIENT
  Age: 68 Year
  Sex: Male

DRUGS (3)
  1. DEPAKENE [Suspect]
     Indication: EPILEPSY
     Route: 048
  2. CARBAMAZEPINE [Interacting]
     Indication: EPILEPSY
     Route: 048
  3. CARBAMAZEPINE [Interacting]
     Route: 048

REACTIONS (4)
  - APALLIC SYNDROME [None]
  - CEREBRAL HAEMORRHAGE [None]
  - DRUG INTERACTION [None]
  - DRUG LEVEL DECREASED [None]
